FAERS Safety Report 12443070 (Version 1)
Quarter: 2016Q2

REPORT INFORMATION
  Report Type: Spontaneous
  Country: US (occurrence: None)
  Receive Date: 20160606
  Receipt Date: 20160606
  Transmission Date: 20160815
  Serious: Yes (Disabling)
  Sender: FDA-Public Use
  Company Number: None

PATIENT
  Age: 56 Year
  Sex: Male
  Weight: 81.65 kg

DRUGS (7)
  1. FISH OIL [Concomitant]
     Active Substance: FISH OIL
  2. AMOXICILLIN 500 MG CAPSULE, 500 MG AUROBINDO PHARM [Suspect]
     Active Substance: AMOXICILLIN
     Indication: TOOTH EXTRACTION
     Dosage: 21 CAPSULE(S) THREE TIMES A DAY
     Route: 048
     Dates: start: 20160212, end: 20160216
  3. MAGNESIUM [Concomitant]
     Active Substance: MAGNESIUM
  4. BYSTOLIC [Concomitant]
     Active Substance: NEBIVOLOL HYDROCHLORIDE
  5. BABY ASPIRIN [Concomitant]
     Active Substance: ASPIRIN
  6. GLUCOSEMAINE [Concomitant]
  7. VITAMINS [Concomitant]
     Active Substance: VITAMINS

REACTIONS (4)
  - Vomiting [None]
  - Dizziness [None]
  - Nausea [None]
  - Product taste abnormal [None]

NARRATIVE: CASE EVENT DATE: 20160216
